FAERS Safety Report 21465792 (Version 1)
Quarter: 2022Q4

REPORT INFORMATION
  Report Type: Spontaneous
  Country: DE (occurrence: DE)
  Receive Date: 20221017
  Receipt Date: 20221017
  Transmission Date: 20230113
  Serious: Yes (Other)
  Sender: FDA-Public Use
  Company Number: DE-AstraZeneca-2022A291958

PATIENT
  Age: 38 Year
  Sex: Female

DRUGS (7)
  1. TAMOXIFEN [Suspect]
     Active Substance: TAMOXIFEN
     Indication: Product used for unknown indication
     Dosage: UNK
     Route: 048
  2. ZOLADEX [Suspect]
     Active Substance: GOSERELIN ACETATE
     Indication: Neoplasm malignant
     Dosage: UNK
     Route: 058
  3. XELODA [Concomitant]
     Active Substance: CAPECITABINE
     Dosage: UNK
     Route: 065
  4. DOXORUBICIN [Concomitant]
     Active Substance: DOXORUBICIN
     Dosage: UNK
     Route: 065
  5. LETROZOLE [Concomitant]
     Active Substance: LETROZOLE
     Dosage: UNK
     Route: 065
  6. PALBOCICLIB [Concomitant]
     Active Substance: PALBOCICLIB
     Dosage: UNK
     Route: 065
  7. ZOMETA [Concomitant]
     Active Substance: ZOLEDRONIC ACID
     Dosage: UNK
     Route: 065

REACTIONS (4)
  - Malignant neoplasm progression [Unknown]
  - Metastases to bone [Unknown]
  - Metastases to liver [Unknown]
  - Ovarian cyst [Unknown]
